FAERS Safety Report 21556027 (Version 1)
Quarter: 2022Q4

REPORT INFORMATION
  Report Type: Spontaneous
  Country: NL (occurrence: NL)
  Receive Date: 20221104
  Receipt Date: 20221104
  Transmission Date: 20230113
  Serious: Yes (Other)
  Sender: FDA-Public Use
  Company Number: NL-FreseniusKabi-FK202214955

PATIENT
  Age: 41 Year
  Sex: Female

DRUGS (3)
  1. LEUCOVORIN [Suspect]
     Active Substance: LEUCOVORIN
     Indication: Colon cancer stage III
     Dosage: WITH DOSE REDUCTIONS UP TO 50 PERCENT DURING TREATMENT
  2. OXALIPLATIN [Suspect]
     Active Substance: OXALIPLATIN
     Indication: Colon cancer stage III
     Dosage: WITH DOSE REDUCTIONS UP TO 50 PERCENT DURING TREATMENT
  3. FLUOROURACIL [Suspect]
     Active Substance: FLUOROURACIL
     Indication: Colon cancer stage III
     Dosage: WITH DOSE REDUCTIONS UP TO 50 PERCENT DURING TREATMENT

REACTIONS (3)
  - Neutropenia [Unknown]
  - Pyrexia [Unknown]
  - Stomatitis [Unknown]
